FAERS Safety Report 16617088 (Version 1)
Quarter: 2019Q3

REPORT INFORMATION
  Report Type: Spontaneous
  Country: FR (occurrence: FR)
  Receive Date: 20190723
  Receipt Date: 20190723
  Transmission Date: 20191004
  Serious: Yes (Other)
  Sender: FDA-Public Use
  Company Number: FR-JNJFOC-20190721671

PATIENT
  Age: 60 Year
  Sex: Male
  Weight: 74 kg

DRUGS (3)
  1. ABIRATERONE ACETATE. [Suspect]
     Active Substance: ABIRATERONE ACETATE
     Indication: PROSTATE CANCER
     Route: 048
     Dates: start: 201711
  2. DECAPEPTYL                         /00486501/ [Concomitant]
     Active Substance: GONADORELIN
     Indication: PROSTATE CANCER
     Route: 030
     Dates: start: 201202
  3. ENALAPRIL [Concomitant]
     Active Substance: ENALAPRIL
     Indication: HYPERTENSION
     Route: 048

REACTIONS (1)
  - Prostatitis [Recovered/Resolved]

NARRATIVE: CASE EVENT DATE: 20190425
